FAERS Safety Report 7595677-6 (Version None)
Quarter: 2011Q3

REPORT INFORMATION
  Report Type: 
  Country: None (occurrence: None)
  Receive Date: 20110707
  Receipt Date: 20110701
  Transmission Date: 20111222
  Serious: Yes (Hospitalization, Other)
  Sender: FDA-Public Use
  Company Number: US-MERCK-1105USA01698

PATIENT
  Age: 56 Year
  Sex: Female

DRUGS (3)
  1. ZOMETA [Concomitant]
     Indication: OSTEOPOROSIS
     Route: 051
     Dates: start: 20091022
  2. FOSAMAX [Suspect]
     Indication: OSTEOPOROSIS
     Route: 048
     Dates: start: 20020101, end: 20070101
  3. ASPIRIN [Concomitant]
     Route: 048

REACTIONS (27)
  - OSTEOARTHRITIS [None]
  - DIVERTICULITIS [None]
  - DYSPEPSIA [None]
  - FALL [None]
  - FATIGUE [None]
  - OSTEOSCLEROSIS [None]
  - FEMUR FRACTURE [None]
  - HIP FRACTURE [None]
  - BONE LESION [None]
  - HYPERCHOLESTEROLAEMIA [None]
  - TENDONITIS [None]
  - TOOTH DISORDER [None]
  - BLOOD DISORDER [None]
  - NODULE [None]
  - MIGRAINE [None]
  - GINGIVAL DISORDER [None]
  - DEPRESSION [None]
  - ANAEMIA [None]
  - STRESS FRACTURE [None]
  - BURSITIS [None]
  - HIATUS HERNIA [None]
  - BUNION [None]
  - GASTRITIS [None]
  - MUSCULAR WEAKNESS [None]
  - HYPERTENSION [None]
  - URINE CALCIUM [None]
  - ROAD TRAFFIC ACCIDENT [None]
